FAERS Safety Report 10537331 (Version 1)
Quarter: 2014Q4

REPORT INFORMATION
  Report Type: Spontaneous
  Country: US (occurrence: US)
  Receive Date: 20141023
  Receipt Date: 20141023
  Transmission Date: 20150529
  Serious: No
  Sender: FDA-Public Use
  Company Number: US-BIOGENIDEC-2014BI109694

PATIENT
  Sex: Male

DRUGS (3)
  1. GILENYA [Concomitant]
     Active Substance: FINGOLIMOD HYDROCHLORIDE
  2. TYSABRI [Suspect]
     Active Substance: NATALIZUMAB
     Indication: MULTIPLE SCLEROSIS
     Route: 042
     Dates: start: 20050210
  3. TYSABRI [Suspect]
     Active Substance: NATALIZUMAB
     Indication: MULTIPLE SCLEROSIS
     Route: 042
     Dates: start: 20061121, end: 20120702

REACTIONS (1)
  - Multiple sclerosis relapse [Recovered/Resolved]
